FAERS Safety Report 8033740-6 (Version None)
Quarter: 2012Q1

REPORT INFORMATION
  Report Type: 
  Country: None (occurrence: None)
  Receive Date: 20120110
  Receipt Date: 20120104
  Transmission Date: 20120608
  Serious: Yes (Disabling)
  Sender: FDA-Public Use
  Company Number: FR-GLAXOSMITHKLINE-B0772748A

PATIENT
  Sex: Male

DRUGS (7)
  1. LERCANIDIPINE [Concomitant]
     Route: 065
  2. REQUIP [Suspect]
     Indication: PARKINSON'S DISEASE
     Dosage: 8MG PER DAY
     Route: 065
     Dates: start: 20100601
  3. ACEBUTOLOL [Concomitant]
     Route: 065
  4. MODOPAR [Suspect]
     Indication: PARKINSON'S DISEASE
     Dosage: 125MG FOUR TIMES PER DAY
     Route: 065
     Dates: start: 20080101
  5. AZILECT [Suspect]
     Indication: PARKINSON'S DISEASE
     Dosage: 1MG PER DAY
     Route: 065
     Dates: start: 20110401, end: 20110601
  6. ASPIRIN [Concomitant]
     Route: 065
  7. DIHYDROERGOTAMINE MESYLATE [Concomitant]
     Route: 065

REACTIONS (5)
  - TOOTH EROSION [None]
  - TOOTH LOSS [None]
  - HYPERSEXUALITY [None]
  - DYSTONIA [None]
  - BRUXISM [None]
